FAERS Safety Report 19570205 (Version 2)
Quarter: 2021Q3

REPORT INFORMATION
  Report Type: Report from Study
  Country: JP (occurrence: JP)
  Receive Date: 20210715
  Receipt Date: 20210812
  Transmission Date: 20211014
  Serious: No
  Sender: FDA-Public Use
  Company Number: JP-EMD SERONO-9165024

PATIENT
  Age: 58 Year
  Sex: Male
  Weight: 64 kg

DRUGS (20)
  1. BAVENCIO [Suspect]
     Active Substance: AVELUMAB
     Route: 041
     Dates: start: 20210331
  2. INLYTA [Suspect]
     Active Substance: AXITINIB
     Route: 048
     Dates: start: 20210217, end: 20210413
  3. AZELNIDIPINE [Suspect]
     Active Substance: AZELNIDIPINE
     Indication: HYPERTENSION
  4. ACETAMINOPHEN. [Concomitant]
     Active Substance: ACETAMINOPHEN
     Route: 048
     Dates: start: 20200722, end: 20210331
  5. BAVENCIO [Suspect]
     Active Substance: AVELUMAB
     Indication: METASTATIC RENAL CELL CARCINOMA
     Route: 041
     Dates: start: 20200415, end: 20200708
  6. DOXAZOSIN [Suspect]
     Active Substance: DOXAZOSIN MESYLATE
     Indication: HYPERTENSION
  7. BAVENCIO [Suspect]
     Active Substance: AVELUMAB
     Route: 041
     Dates: start: 20210203, end: 20210317
  8. INLYTA [Suspect]
     Active Substance: AXITINIB
     Route: 048
     Dates: start: 202004, end: 2020
  9. INLYTA [Suspect]
     Active Substance: AXITINIB
     Route: 048
     Dates: start: 20200709, end: 20210126
  10. BAVENCIO [Suspect]
     Active Substance: AVELUMAB
     Route: 041
     Dates: start: 20200722, end: 20201014
  11. OLMESARTAN [Suspect]
     Active Substance: OLMESARTAN
     Indication: HYPERTENSION
  12. POLARAMINE [Concomitant]
     Active Substance: DEXCHLORPHENIRAMINE MALEATE
     Route: 041
     Dates: start: 20200722, end: 20210331
  13. INLYTA [Suspect]
     Active Substance: AXITINIB
     Indication: METASTATIC RENAL CELL CARCINOMA
     Route: 048
  14. ATENOLOL. [Suspect]
     Active Substance: ATENOLOL
     Indication: HYPERTENSION
  15. BAVENCIO [Suspect]
     Active Substance: AVELUMAB
     Route: 041
     Dates: start: 20201029, end: 20210107
  16. INLYTA [Suspect]
     Active Substance: AXITINIB
     Route: 048
  17. METHYLDOPA. [Suspect]
     Active Substance: METHYLDOPA
     Indication: HYPERTENSION
  18. ACETAMINOPHEN. [Concomitant]
     Active Substance: ACETAMINOPHEN
     Indication: PREMEDICATION
     Route: 048
     Dates: start: 20200415, end: 20200708
  19. INLYTA [Suspect]
     Active Substance: AXITINIB
     Route: 048
     Dates: start: 20200610, end: 20200623
  20. POLARAMINE [Concomitant]
     Active Substance: DEXCHLORPHENIRAMINE MALEATE
     Indication: PREMEDICATION
     Route: 041
     Dates: start: 20200415, end: 20200708

REACTIONS (8)
  - Pyrexia [Recovered/Resolved]
  - Hypocalcaemia [Unknown]
  - Hypertension [Recovering/Resolving]
  - Rash [Recovered/Resolved]
  - Palmar-plantar erythrodysaesthesia syndrome [Recovering/Resolving]
  - Diarrhoea [Recovered/Resolved]
  - Rheumatoid arthritis [Not Recovered/Not Resolved]
  - Stomatitis [Recovered/Resolved]

NARRATIVE: CASE EVENT DATE: 2020
